FAERS Safety Report 7686722-8 (Version None)
Quarter: 2011Q3

REPORT INFORMATION
  Report Type: 
  Country: None (occurrence: None)
  Receive Date: 20110816
  Receipt Date: 20110309
  Transmission Date: 20111222
  Serious: Yes (Other)
  Sender: FDA-Public Use
  Company Number: US-MYLANLABS-2011S1003398

PATIENT
  Age: 93 Year
  Sex: Female
  Weight: 84.37 kg

DRUGS (4)
  1. LEXAPRO [Concomitant]
  2. SIMAVASTATIN [Concomitant]
  3. LISINOPRIL AND HYDROCHLOROTHIAZIDE [Suspect]
     Indication: BLOOD PRESSURE INCREASED
     Route: 048
     Dates: start: 20110116, end: 20110118
  4. LISINOPRIL AND HYDROCHLOROTHIAZIDE [Suspect]
     Route: 048
     Dates: start: 20110116, end: 20110118

REACTIONS (1)
  - HYPERSENSITIVITY [None]
